FAERS Safety Report 6406330-6 (Version None)
Quarter: 2009Q4

REPORT INFORMATION
  Report Type: 
  Country: None (occurrence: None)
  Receive Date: 20091014
  Receipt Date: 20091002
  Transmission Date: 20100525
  Serious: Yes (Other)
  Sender: FDA-Public Use
  Company Number: 2009SP029155

PATIENT
  Age: 13 Year
  Sex: Female

DRUGS (5)
  1. CLARITIN [Suspect]
     Indication: EYE PRURITUS
     Dosage: 10 MG; QD; PO
     Route: 048
     Dates: start: 20090827
  2. CLARITIN [Suspect]
     Indication: NASAL DISCOMFORT
     Dosage: 10 MG; QD; PO
     Route: 048
     Dates: start: 20090827
  3. CLARITIN [Suspect]
     Indication: RHINORRHOEA
     Dosage: 10 MG; QD; PO
     Route: 048
     Dates: start: 20090827
  4. CLARITIN [Suspect]
     Indication: SNEEZING
     Dosage: 10 MG; QD; PO
     Route: 048
     Dates: start: 20090827
  5. CLARITIN [Suspect]
     Indication: THROAT IRRITATION
     Dosage: 10 MG; QD; PO
     Route: 048
     Dates: start: 20090827

REACTIONS (2)
  - IRRITABILITY [None]
  - MOOD ALTERED [None]
